FAERS Safety Report 5409851-8 (Version None)
Quarter: 2007Q3

REPORT INFORMATION
  Report Type: 
  Country: None (occurrence: None)
  Receive Date: 20070809
  Receipt Date: 20070731
  Transmission Date: 20080115
  Serious: Yes (Other)
  Sender: FDA-Public Use
  Company Number: JP-PFIZER INC-2007064049

PATIENT
  Age: 18 Year

DRUGS (5)
  1. ZOLOFT [Suspect]
     Indication: DEPRESSION
     Route: 048
  2. DOGMATYL [Concomitant]
     Route: 048
  3. LEXOTAN [Concomitant]
     Route: 048
  4. HALCION [Concomitant]
     Route: 048
  5. LORAZEPAM [Concomitant]
     Route: 048

REACTIONS (3)
  - ABNORMAL BEHAVIOUR [None]
  - SOMNOLENCE [None]
  - SUICIDE ATTEMPT [None]
